FAERS Safety Report 7452883-9 (Version None)
Quarter: 2011Q2

REPORT INFORMATION
  Report Type: 
  Country: None (occurrence: None)
  Receive Date: 20110502
  Receipt Date: 20101014
  Transmission Date: 20111010
  Serious: No
  Sender: FDA-Public Use
  Company Number: US-ASTRAZENECA-2010SE48675

PATIENT
  Sex: Female

DRUGS (5)
  1. ATENOLOL [Concomitant]
  2. ADVAIR DISKUS 100/50 [Concomitant]
  3. LISINOPRIL [Concomitant]
  4. NEXIUM [Suspect]
     Indication: GASTROOESOPHAGEAL REFLUX DISEASE
     Route: 048
     Dates: start: 20101013
  5. LASIX [Concomitant]

REACTIONS (1)
  - HYPOTENSION [None]
